FAERS Safety Report 6494013-6 (Version None)
Quarter: 2009Q4

REPORT INFORMATION
  Report Type: 
  Country: None (occurrence: None)
  Receive Date: 20091214
  Receipt Date: 20081210
  Transmission Date: 20100525
  Serious: No
  Sender: FDA-Public Use
  Company Number: US-BRISTOL-MYERS SQUIBB COMPANY-14438055

PATIENT
  Age: 33 Year
  Sex: Female

DRUGS (3)
  1. ABILIFY [Suspect]
     Indication: MAJOR DEPRESSION
     Dosage: INITIAL DOSE 2MG/D
     Dates: start: 20080923
  2. PAROXETINE HCL [Concomitant]
  3. LORAZEPAM [Concomitant]

REACTIONS (1)
  - WEIGHT INCREASED [None]
